FAERS Safety Report 17861421 (Version 1)
Quarter: 2020Q2

REPORT INFORMATION
  Report Type: Report from Study
  Country: IT (occurrence: IT)
  Receive Date: 20200604
  Receipt Date: 20200604
  Transmission Date: 20200714
  Serious: Yes (Other)
  Sender: FDA-Public Use
  Company Number: IT-EXELIXIS-XL18420026591

PATIENT
  Age: 59 Year
  Sex: Male
  Weight: 101 kg

DRUGS (4)
  1. CABOZANTINIB [Suspect]
     Active Substance: CABOZANTINIB
     Dosage: 60 MG,DAILY
     Route: 048
     Dates: start: 20200324, end: 20200414
  2. CABOZANTINIB [Suspect]
     Active Substance: CABOZANTINIB
     Indication: RENAL CELL CARCINOMA
     Dosage: 60 MG,DAILY
     Route: 048
     Dates: start: 20190924, end: 20191114
  3. CABOZANTINIB [Suspect]
     Active Substance: CABOZANTINIB
     Dosage: 60 MG,DAILY
     Route: 048
     Dates: start: 20191211, end: 20200220
  4. CABOZANTINIB [Suspect]
     Active Substance: CABOZANTINIB
     Dosage: 60 MG,DAILY
     Route: 048
     Dates: start: 20200226, end: 20200318

REACTIONS (13)
  - Diarrhoea [Recovered/Resolved]
  - Dysgeusia [Recovered/Resolved]
  - Mucosal inflammation [Not Recovered/Not Resolved]
  - Hypokalaemia [Recovered/Resolved]
  - Deafness [Recovered/Resolved]
  - Decreased appetite [Recovered/Resolved]
  - Diarrhoea [Recovered/Resolved]
  - Hypocalcaemia [Recovered/Resolved]
  - Hypertension [Not Recovered/Not Resolved]
  - Bone pain [Not Recovered/Not Resolved]
  - Fatigue [Recovered/Resolved]
  - Hypocalcaemia [Recovered/Resolved]
  - Hypokalaemia [Recovered/Resolved]

NARRATIVE: CASE EVENT DATE: 201812
